FAERS Safety Report 8257127-6 (Version None)
Quarter: 2012Q1

REPORT INFORMATION
  Report Type: 
  Country: None (occurrence: None)
  Receive Date: 20120322
  Receipt Date: 20120216
  Transmission Date: 20120608
  Serious: Yes (Hospitalization)
  Sender: FDA-Public Use
  Company Number: UTC-015697

PATIENT
  Age: 79 Year
  Sex: Male
  Weight: 82.7 kg

DRUGS (4)
  1. TYVASO [Suspect]
     Indication: PULMONARY ARTERIAL HYPERTENSION
     Dosage: 288 MCG, (72 MCG, 4 IN 1 D), INHALATION
     Route: 055
     Dates: start: 20101104
  2. DIURETICS (DIURETICS) [Concomitant]
  3. COUMADIN [Concomitant]
  4. ADCIRCA [Concomitant]

REACTIONS (2)
  - SPINAL FRACTURE [None]
  - OEDEMA [None]
